FAERS Safety Report 6534647-3 (Version None)
Quarter: 2010Q1

REPORT INFORMATION
  Report Type: 
  Country: None (occurrence: None)
  Receive Date: 20100112
  Receipt Date: 20090107
  Transmission Date: 20100710
  Serious: Yes (Death)
  Sender: FDA-Public Use
  Company Number: JP-SANOFI-AVENTIS-F01200900012

PATIENT
  Age: 66 Year
  Sex: Male
  Weight: 66.1 kg

DRUGS (7)
  1. CLOPIDOGREL BISULFATE [Suspect]
     Dosage: DOSE TEXT: STARTING DOSE
     Route: 048
     Dates: start: 20080919, end: 20080919
  2. CLOPIDOGREL BISULFATE [Suspect]
     Dosage: DOSE TEXT: MAINTENANCE DOSE
     Route: 048
     Dates: start: 20080920, end: 20080924
  3. ASPIRIN [Concomitant]
     Route: 048
     Dates: start: 20080919, end: 20080919
  4. ASPIRIN [Concomitant]
     Route: 048
     Dates: start: 20080920, end: 20080924
  5. HEPARIN [Concomitant]
     Route: 042
     Dates: start: 20080919, end: 20080920
  6. NORVASC [Concomitant]
     Route: 048
     Dates: start: 20080920, end: 20080924
  7. GASTER OD [Concomitant]
     Route: 048
     Dates: start: 20080920, end: 20080924

REACTIONS (1)
  - SUDDEN DEATH [None]
